FAERS Safety Report 11545002 (Version 2)
Quarter: 2015Q4

REPORT INFORMATION
  Report Type: Spontaneous
  Country: US (occurrence: US)
  Receive Date: 20150924
  Receipt Date: 20151210
  Transmission Date: 20160304
  Serious: Yes (Other)
  Sender: FDA-Public Use
  Company Number: US-VIIV HEALTHCARE LIMITED-US2015135147

PATIENT
  Sex: Male

DRUGS (2)
  1. VIREAD [Concomitant]
     Active Substance: TENOFOVIR DISOPROXIL FUMARATE
  2. COMBIVIR [Suspect]
     Active Substance: LAMIVUDINE\ZIDOVUDINE
     Indication: HIV INFECTION
     Dosage: UNKNOWN
     Route: 048
     Dates: start: 2005, end: 2013

REACTIONS (9)
  - Emergency care examination [Recovered/Resolved]
  - Phlebotomy [Unknown]
  - Red blood cell count decreased [Recovered/Resolved]
  - Emotional distress [Unknown]
  - Transfusion [Unknown]
  - Bone marrow disorder [Unknown]
  - Lethargy [Unknown]
  - Asthenia [Recovering/Resolving]
  - Pain [Unknown]

NARRATIVE: CASE EVENT DATE: 2007
